FAERS Safety Report 14699368 (Version 1)
Quarter: 2018Q1

REPORT INFORMATION
  Report Type: Spontaneous
  Country: US (occurrence: US)
  Receive Date: 20180330
  Receipt Date: 20180330
  Transmission Date: 20180509
  Serious: Yes (Hospitalization)
  Sender: FDA-Public Use
  Company Number: US-GLAXOSMITHKLINE-US2018052287

PATIENT
  Age: 71 Year
  Sex: Female

DRUGS (6)
  1. VENTOLIN HFA [Suspect]
     Active Substance: ALBUTEROL SULFATE
     Indication: ASTHMA
     Dosage: 2 PUFF(S), PRN
     Route: 055
     Dates: start: 2008
  2. FLOVENT [Suspect]
     Active Substance: FLUTICASONE PROPIONATE
     Indication: ASTHMA
     Dosage: 1 PUFF(S), BID
     Route: 055
     Dates: start: 20180226, end: 2018
  3. BREO ELLIPTA [Suspect]
     Active Substance: FLUTICASONE FUROATE\VILANTEROL TRIFENATATE
     Indication: ASTHMA
     Dosage: 1 PUFF(S), QD
     Route: 055
     Dates: start: 201803
  4. PREDNISONE. [Concomitant]
     Active Substance: PREDNISONE
  5. ALBUTEROL. [Suspect]
     Active Substance: ALBUTEROL
     Indication: ASTHMA
     Route: 055
  6. ARNUITY ELLIPTA [Suspect]
     Active Substance: FLUTICASONE FUROATE
     Indication: ASTHMA
     Dosage: 1 PUFF(S), QD
     Route: 055
     Dates: start: 201802, end: 201802

REACTIONS (19)
  - Eye pain [Unknown]
  - Cataract [Unknown]
  - Vaginal pH abnormal [Unknown]
  - Asthma [Unknown]
  - Angiopathy [Unknown]
  - Eye disorder [Unknown]
  - Breath odour [Unknown]
  - Overdose [Unknown]
  - pH urine abnormal [Unknown]
  - Cough [Unknown]
  - Weight increased [Unknown]
  - Wheezing [Unknown]
  - Arthralgia [Unknown]
  - Urinary incontinence [Unknown]
  - Insomnia [Unknown]
  - Ill-defined disorder [Unknown]
  - Skin discolouration [Unknown]
  - Renal pain [Unknown]
  - Urinary tract infection [Unknown]

NARRATIVE: CASE EVENT DATE: 20180326
